FAERS Safety Report 18772782 (Version 1)
Quarter: 2021Q1

REPORT INFORMATION
  Report Type: Spontaneous
  Country: US (occurrence: US)
  Receive Date: 20210121
  Receipt Date: 20210121
  Transmission Date: 20210419
  Serious: No
  Sender: FDA-Public Use
  Company Number: None

PATIENT
  Age: 55 Year
  Sex: Female
  Weight: 40.05 kg

DRUGS (1)
  1. XELJANZ XR [Suspect]
     Active Substance: TOFACITINIB CITRATE
     Indication: RHEUMATOID ARTHRITIS
     Route: 048
     Dates: start: 20201222, end: 20210110

REACTIONS (5)
  - Chest pain [None]
  - Tremor [None]
  - Disorientation [None]
  - Hypersomnia [None]
  - Hypertension [None]

NARRATIVE: CASE EVENT DATE: 20210114
